FAERS Safety Report 8267429-5 (Version None)
Quarter: 2012Q2

REPORT INFORMATION
  Report Type: 
  Country: None (occurrence: None)
  Receive Date: 20120409
  Receipt Date: 20120403
  Transmission Date: 20120825
  Serious: Yes (Hospitalization)
  Sender: FDA-Public Use
  Company Number: PHEH2012US007324

PATIENT
  Sex: Female

DRUGS (1)
  1. EXJADE [Suspect]
     Indication: SICKLE CELL ANAEMIA
     Dosage: 750 MG DAILY
     Route: 048
     Dates: start: 20100811

REACTIONS (2)
  - PAIN [None]
  - DEVICE RELATED INFECTION [None]
